FAERS Safety Report 16723937 (Version 1)
Quarter: 2019Q3

REPORT INFORMATION
  Report Type: Spontaneous
  Country: US (occurrence: US)
  Receive Date: 20190821
  Receipt Date: 20190821
  Transmission Date: 20191005
  Serious: Yes (Other)
  Sender: FDA-Public Use
  Company Number: PHEH2019US034240

PATIENT
  Sex: Female

DRUGS (1)
  1. AFINITOR [Suspect]
     Active Substance: EVEROLIMUS
     Indication: UTERINE CANCER
     Dosage: 10 MG, QD
     Route: 048

REACTIONS (6)
  - Diarrhoea [Unknown]
  - Product use in unapproved indication [Unknown]
  - Rectal haemorrhage [Unknown]
  - Anaemia [Recovering/Resolving]
  - Hypomagnesaemia [Unknown]
  - Burning sensation [Unknown]
